FAERS Safety Report 15728783 (Version 1)
Quarter: 2018Q4

REPORT INFORMATION
  Report Type: Report from Study
  Country: DE (occurrence: DE)
  Receive Date: 20181217
  Receipt Date: 20181217
  Transmission Date: 20190205
  Serious: Yes (Hospitalization, Other)
  Sender: FDA-Public Use
  Company Number: DE-ROCHE-2218936

PATIENT
  Age: 42 Year
  Sex: Male
  Weight: 73 kg

DRUGS (6)
  1. TRASTUZUMAB. [Suspect]
     Active Substance: TRASTUZUMAB
     Indication: ADENOCARCINOMA GASTRIC
     Dosage: DATE OF LAST DOSE 536 MG OF TRASTUZUMAB GIVEN PRIOR TO SERIOUS ADVERSE EVENT ONSET: 14/SEP/2018
     Route: 042
     Dates: start: 20180802
  2. DOCETAXOL [Suspect]
     Active Substance: DOCETAXEL
     Indication: ADENOCARCINOMA GASTRIC
     Dosage: DATE OF LAST DOSE ON 14/SEP/2018
     Route: 065
  3. CALCIUM FOLINATE [Suspect]
     Active Substance: LEUCOVORIN CALCIUM
     Indication: ADENOCARCINOMA GASTRIC
     Dosage: DATE OF LAST DOSE ON 14/SEP/2018
     Route: 065
  4. OXALIPLATIN. [Suspect]
     Active Substance: OXALIPLATIN
     Indication: ADENOCARCINOMA GASTRIC
     Dosage: DATE OF LAST DOSE ON 30/AUG/2018
     Route: 065
  5. FLUOROURACIL. [Suspect]
     Active Substance: FLUOROURACIL
     Indication: ADENOCARCINOMA GASTRIC
     Dosage: DATE OF LAST DOSE ON 14/SEP/2018
     Route: 065
  6. PERTUZUMAB. [Suspect]
     Active Substance: PERTUZUMAB
     Indication: ADENOCARCINOMA GASTRIC
     Dosage: DATE OF LAST DOSE 840 MG OF PERTUZUMAB GIVEN PRIOR TO SERIOUS ADVERSE EVENT ONSET: 14/SEP/2018
     Route: 065
     Dates: start: 20180802

REACTIONS (2)
  - Lymphorrhoea [Unknown]
  - Chylothorax [Recovered/Resolved]

NARRATIVE: CASE EVENT DATE: 20181118
